FAERS Safety Report 7769549-8 (Version None)
Quarter: 2011Q3

REPORT INFORMATION
  Report Type: 
  Country: None (occurrence: None)
  Receive Date: 20110922
  Receipt Date: 20110328
  Transmission Date: 20111222
  Serious: No
  Sender: FDA-Public Use
  Company Number: US-ASTRAZENECA-2009UW08771

PATIENT
  Age: 54 Year
  Sex: Female
  Weight: 93 kg

DRUGS (5)
  1. SEROQUEL [Suspect]
     Indication: BIPOLAR I DISORDER
     Route: 048
  2. TEGRETOL [Concomitant]
     Indication: BIPOLAR DISORDER
  3. SEROQUEL [Suspect]
     Dosage: 400MG SEROQUEL, SEROQUEL XR 400MG HS
     Route: 048
     Dates: start: 20101201
  4. KLONOPIN [Concomitant]
     Indication: BIPOLAR DISORDER
  5. KEPPRA [Concomitant]
     Indication: BIPOLAR DISORDER

REACTIONS (9)
  - ANXIETY [None]
  - PO2 DECREASED [None]
  - PANIC ATTACK [None]
  - CONFUSIONAL STATE [None]
  - CRYING [None]
  - NIGHTMARE [None]
  - PARANOIA [None]
  - HYPERHIDROSIS [None]
  - WEIGHT INCREASED [None]
